FAERS Safety Report 24045432 (Version 2)
Quarter: 2024Q3

REPORT INFORMATION
  Report Type: Spontaneous
  Country: AU (occurrence: AU)
  Receive Date: 20240703
  Receipt Date: 20240820
  Transmission Date: 20241016
  Serious: Yes (Death, Other)
  Sender: JAZZ
  Company Number: AU-JAZZ PHARMACEUTICALS-2024-AU-010144

PATIENT
  Sex: Male

DRUGS (1)
  1. DEFITELIO [Suspect]
     Active Substance: DEFIBROTIDE SODIUM
     Indication: Venoocclusive disease
     Dosage: 6 HOURLY
     Dates: start: 20240629, end: 20240702

REACTIONS (1)
  - Neutropenic sepsis [Fatal]
